FAERS Safety Report 24994581 (Version 3)
Quarter: 2025Q3

REPORT INFORMATION
  Report Type: Spontaneous
  Country: EU (occurrence: EU)
  Receive Date: 20250221
  Receipt Date: 20250809
  Transmission Date: 20251021
  Serious: Yes (Hospitalization, Other)
  Sender: ALEXION PHARMACEUTICALS
  Company Number: EU-SA-2025SA047693

PATIENT
  Age: 22 Day
  Sex: Male

DRUGS (1)
  1. BEYFORTUS [Suspect]
     Active Substance: NIRSEVIMAB-ALIP
     Indication: Respiratory syncytial virus immunisation

REACTIONS (6)
  - Respiratory syncytial virus infection [Unknown]
  - Cough [Unknown]
  - Rhinitis [Unknown]
  - Feeding disorder [Unknown]
  - Respiratory syncytial virus bronchiolitis [Unknown]
  - Decreased appetite [Unknown]

NARRATIVE: CASE EVENT DATE: 20250208
